FAERS Safety Report 23314120 (Version 1)
Quarter: 2023Q4

REPORT INFORMATION
  Report Type: Spontaneous
  Country: US (occurrence: US)
  Receive Date: 20231219
  Receipt Date: 20231219
  Transmission Date: 20240110
  Serious: Yes (Other)
  Sender: FDA-Public Use
  Company Number: US-BRISTOL-MYERS SQUIBB COMPANY-2023-181401

PATIENT
  Age: 68 Year
  Sex: Female
  Weight: 55.34 kg

DRUGS (4)
  1. ELIQUIS [Suspect]
     Active Substance: APIXABAN
     Indication: Atrial fibrillation
     Dosage: 5 MG, 2X/DAY
     Route: 048
  2. METOPROLOL TARTRATE [Suspect]
     Active Substance: METOPROLOL TARTRATE
     Dosage: 50 MG, 2X/DAY
  3. METOPROLOL TARTRATE [Suspect]
     Active Substance: METOPROLOL TARTRATE
     Dosage: 25 MG
  4. CRESTOR [Concomitant]
     Active Substance: ROSUVASTATIN CALCIUM

REACTIONS (9)
  - Ear haemorrhage [Unknown]
  - Loss of consciousness [Unknown]
  - Epistaxis [Unknown]
  - Mouth haemorrhage [Unknown]
  - Vitamin D deficiency [Unknown]
  - Bone loss [Unknown]
  - Palpitations [Unknown]
  - Tooth disorder [Unknown]
  - Blood pressure decreased [Unknown]
